FAERS Safety Report 13484639 (Version 1)
Quarter: 2017Q2

REPORT INFORMATION
  Report Type: Spontaneous
  Country: US (occurrence: US)
  Receive Date: 20170426
  Receipt Date: 20170426
  Transmission Date: 20170830
  Serious: No
  Sender: FDA-Public Use
  Company Number: US-TEVA-757334ACC

PATIENT
  Age: 37 Year
  Sex: Female
  Weight: 69.92 kg

DRUGS (1)
  1. PLAN B ONE-STEP [Suspect]
     Active Substance: LEVONORGESTREL
     Indication: POST COITAL CONTRACEPTION
     Dates: start: 20170320, end: 20170320

REACTIONS (5)
  - Stress [Not Recovered/Not Resolved]
  - Feeding disorder [Recovered/Resolved]
  - Dysmenorrhoea [Unknown]
  - Menstruation delayed [Not Recovered/Not Resolved]
  - Uterine leiomyoma [Unknown]

NARRATIVE: CASE EVENT DATE: 20170324
